FAERS Safety Report 4766868-4 (Version None)
Quarter: 2005Q3

REPORT INFORMATION
  Report Type: 
  Country: None (occurrence: None)
  Receive Date: 20050909
  Receipt Date: 20050831
  Transmission Date: 20060218
  Serious: Yes (Hospitalization)
  Sender: FDA-Public Use
  Company Number: 2005-DE-03070DE

PATIENT
  Age: 75 Year
  Sex: Female

DRUGS (1)
  1. THEOPHYLLINE [Suspect]
     Dosage: PO
     Route: 048

REACTIONS (7)
  - CONFUSIONAL STATE [None]
  - DISORIENTATION [None]
  - INTENTIONAL MISUSE [None]
  - MULTIPLE DRUG OVERDOSE [None]
  - RESPIRATORY ALKALOSIS [None]
  - SOMNOLENCE [None]
  - SUICIDE ATTEMPT [None]
